FAERS Safety Report 8186557-6 (Version None)
Quarter: 2012Q1

REPORT INFORMATION
  Report Type: 
  Country: None (occurrence: None)
  Receive Date: 20120306
  Receipt Date: 20120228
  Transmission Date: 20120608
  Serious: Yes (Hospitalization)
  Sender: FDA-Public Use
  Company Number: FR-UCBSA-052389

PATIENT
  Age: 67 Year
  Sex: Male

DRUGS (4)
  1. VIMPAT [Suspect]
     Indication: CONVULSION
     Route: 048
     Dates: start: 20120101, end: 20120101
  2. LAMICTAL [Concomitant]
     Indication: COMPLEX PARTIAL SEIZURES
     Dates: start: 20120101, end: 20120101
  3. LAMICTAL [Concomitant]
     Dosage: DOSE INCREASED
     Dates: start: 20120101
  4. TRILEPTAL [Concomitant]

REACTIONS (2)
  - HALLUCINATION [None]
  - DELIRIUM [None]
